FAERS Safety Report 6383507-X (Version None)
Quarter: 2009Q4

REPORT INFORMATION
  Report Type: 
  Country: None (occurrence: None)
  Receive Date: 20091001
  Receipt Date: 20090924
  Transmission Date: 20100525
  Serious: Yes (Other)
  Sender: FDA-Public Use
  Company Number: US-ELI_LILLY_AND_COMPANY-US200908001646

PATIENT
  Sex: Male

DRUGS (3)
  1. HUMALOG MIX 75/25 [Suspect]
     Indication: TYPE 2 DIABETES MELLITUS
     Dosage: 35 U, EACH MORNING
     Dates: start: 19990101
  2. HUMALOG MIX 75/25 [Suspect]
     Dosage: 50 U, EACH EVENING
     Dates: start: 19990101
  3. COREG [Concomitant]
     Indication: BLOOD PRESSURE

REACTIONS (2)
  - BLOOD GLUCOSE DECREASED [None]
  - NASAL SINUS CANCER [None]
